FAERS Safety Report 18042942 (Version 1)
Quarter: 2020Q3

REPORT INFORMATION
  Report Type: Spontaneous
  Country: US (occurrence: US)
  Receive Date: 20200717
  Receipt Date: 20200717
  Transmission Date: 20201103
  Serious: Yes (Other)
  Sender: FDA-Public Use
  Company Number: None

PATIENT
  Age: 58 Year
  Sex: Female
  Weight: 72 kg

DRUGS (10)
  1. EXCEDRIN [Concomitant]
     Active Substance: ACETAMINOPHEN\ASPIRIN\CAFFEINE
  2. HYDROCODONE [Concomitant]
     Active Substance: HYDROCODONE
  3. FLEXERIL [Concomitant]
     Active Substance: CYCLOBENZAPRINE HYDROCHLORIDE
  4. MAGNESIUM [Concomitant]
     Active Substance: MAGNESIUM
  5. VITAMIN D [Concomitant]
     Active Substance: VITAMIN D NOS
  6. IBUPROFEN. [Concomitant]
     Active Substance: IBUPROFEN
  7. CPAP [Concomitant]
     Active Substance: DEVICE
  8. MULTIVITAMINS [Concomitant]
     Active Substance: VITAMINS
  9. FISH OIL [Concomitant]
     Active Substance: FISH OIL
  10. BLUMEN ADVANCED HAND SANITIZER [Suspect]
     Active Substance: ALCOHOL
     Indication: PROPHYLAXIS
     Dosage: ?          QUANTITY:1 BOTTLE;?
     Route: 061
     Dates: start: 20200501, end: 20200716

REACTIONS (2)
  - Fatigue [None]
  - Illness [None]

NARRATIVE: CASE EVENT DATE: 20200501
